FAERS Safety Report 6249921-8 (Version None)
Quarter: 2009Q2

REPORT INFORMATION
  Report Type: 
  Country: None (occurrence: None)
  Receive Date: 20090629
  Receipt Date: 20090626
  Transmission Date: 20091009
  Serious: Yes (Life-Threatening, Hospitalization)
  Sender: FDA-Public Use
  Company Number: US-B.I. PHARMACEUTICALS,INC./RIDGEFIELD-2008-BP-07023BP

PATIENT
  Sex: Male
  Weight: 85.2 kg

DRUGS (1)
  1. BLIND (MICARDIS) [Suspect]
     Indication: CONGENITAL CYSTIC KIDNEY DISEASE
     Route: 048
     Dates: start: 20070621

REACTIONS (4)
  - ENDOCRINE DISORDER [None]
  - HYPERKALAEMIA [None]
  - HYPERTENSION [None]
  - RENAL FAILURE [None]
